FAERS Safety Report 6811122-X (Version None)
Quarter: 2010Q2

REPORT INFORMATION
  Report Type: 
  Country: None (occurrence: None)
  Receive Date: 20100630
  Receipt Date: 20090526
  Transmission Date: 20101027
  Serious: No
  Sender: FDA-Public Use
  Company Number: US-PFIZER INC-2009196574

PATIENT
  Sex: Male
  Weight: 138.34 kg

DRUGS (3)
  1. NICOTROL [Suspect]
     Indication: SMOKING CESSATION THERAPY
     Dosage: 10 MG, UNK
  2. COREG [Concomitant]
     Indication: HYPERTENSION
     Dosage: 6.25 MG, 2X/DAY
  3. LOTREL [Concomitant]
     Indication: HYPERTENSION
     Dosage: 5/20 TWICE DAILY

REACTIONS (5)
  - COUGH [None]
  - EXPIRED DRUG ADMINISTERED [None]
  - RESPIRATORY TRACT INFECTION [None]
  - SINUSITIS [None]
  - TOBACCO USER [None]
